FAERS Safety Report 18364738 (Version 1)
Quarter: 2020Q4

REPORT INFORMATION
  Report Type: Spontaneous
  Country: NL (occurrence: NL)
  Receive Date: 20201009
  Receipt Date: 20201009
  Transmission Date: 20210114
  Serious: Yes (Hospitalization)
  Sender: FDA-Public Use
  Company Number: NL-TEVA-2020-NL-1836440

PATIENT
  Sex: Male
  Weight: 88 kg

DRUGS (15)
  1. MACROGOL/ZOUTEN DRANK / BRAND NAME NOT SPECIFIED [Concomitant]
     Dosage: 2 DOSAGE FORMS DAILY;  THERAPY START DATE AND END DATE: ASKED BUT UNKNOWN
  2. PARACETAMOL TABLET  500MG / BRAND NAME NOT SPECIFIED [Concomitant]
     Dosage: 1000 MG, THERAPY START DATE AND END DATE: ASKED BUT UNKNOWN
  3. ALENDRONINEZUUR TABLET 70MG / BRAND NAME NOT SPECIFIED [Concomitant]
     Active Substance: ALENDRONIC ACID
     Dosage: 70 MG, 1 PIECE ON FRIDAY ONLY, THERAPY START DATE AND END DATE: ASKED BUT UNKNOWN
  4. PREDNISOLON TABLET  5MG / BRAND NAME NOT SPECIFIED [Concomitant]
     Active Substance: PREDNISOLONE
     Dosage: 5 MILLIGRAM DAILY; THERAPY START DATE AND END DATE: ASKED BUT UNKNOWN
  5. METHOTREXAAT TABLET 2,5MG / BRAND NAME NOT SPECIFIED [Suspect]
     Active Substance: METHOTREXATE SODIUM
     Indication: RHEUMATOID ARTHRITIS
     Dosage: 10 TABLETS OF 2.5 MG, 25 MG
     Route: 048
     Dates: start: 201901, end: 20200130
  6. SULFASALAZINE TABLET MSR 500MG / BRAND NAME NOT SPECIFIED [Concomitant]
     Dosage: 3000 MILLIGRAM DAILY; 500 MG, 2 X PER DAY 3 PIECES, THERAPY START DATE AND END DATE: ASKED BUT UNKNO
  7. PANTOPRAZOL TABLET MSR 40MG / BRAND NAME NOT SPECIFIED [Concomitant]
     Active Substance: PANTOPRAZOLE
     Dosage: 40 MILLIGRAM DAILY; THERAPY START DATE AND END DATE: ASKED BUT UNKNOWN
  8. ETANERCEPT INJVLST 50MG/ML / ENBREL MYCLIC INJVLST 50MG/ML PEN 1ML [Concomitant]
     Dosage: 50 MG, THERAPY START DATE AND END DATE: ASKED BUT UNKNOWN
  9. ATORVASTATINE TABLET 20MG / BRAND NAME NOT SPECIFIED [Concomitant]
     Active Substance: ATORVASTATIN
     Dosage: 20 MILLIGRAM DAILY; THERAPY START DATE AND END DATE: ASKED BUT UNKNOWN
  10. METOCLOPRAMIDE TABLET 10MG / BRAND NAME NOT SPECIFIED [Concomitant]
     Active Substance: METOCLOPRAMIDE
     Dosage: 30 MILLIGRAM DAILY;  THERAPY START DATE AND END DATE: ASKED BUT UNKNOWN
  11. CALCIUMCARBONAAT KAUWTABLET 1,25G (500MG CA) / CALCI CHEW KAUWTABLET [Concomitant]
     Dosage: 500 MILLIGRAM DAILY;  THERAPY START DATE AND END DATE: ASKED BUT UNKNOWN
  12. QUETIAPINE TABLET FO  25MG / BRAND NAME NOT SPECIFIED [Concomitant]
     Dosage: 25 MILLIGRAM DAILY; THERAPY START DATE AND END DATE: ASKED BUT UNKNOWN
  13. CLOPIDOGREL TABLET   75MG / BRAND NAME NOT SPECIFIED [Concomitant]
     Dosage: 75 MILLIGRAM DAILY; THERAPY START DATE AND END DATE: ASKED BUT UNKNOWN
  14. FOLIUMZUUR TABLET 5MG / BRAND NAME NOT SPECIFIED [Concomitant]
     Dosage: 5 MG, 2 PIECES ONLY ON WEDNESDAYS, 10 MG, THERAPY START DATE AND END DATE: ASKED BUT UNKNOWN
  15. METFORMINE TABLET MGA  500MG / BRAND NAME NOT SPECIFIED [Concomitant]
     Dosage: 2000 MILLIGRAM DAILY; THERAPY START DATE AND END DATE: ASKED BUT UNKNOWN

REACTIONS (2)
  - Bronchopulmonary aspergillosis [Not Recovered/Not Resolved]
  - Pneumothorax [Not Recovered/Not Resolved]
